FAERS Safety Report 4555628-5 (Version None)
Quarter: 2005Q1

REPORT INFORMATION
  Report Type: 
  Country: None (occurrence: None)
  Receive Date: 20050118
  Receipt Date: 20050104
  Transmission Date: 20050727
  Serious: Yes (Death, Hospitalization)
  Sender: FDA-Public Use
  Company Number: GXKR2004DE00643

PATIENT
  Age: 74 Year
  Sex: Male

DRUGS (3)
  1. FUROSEMIDE [Suspect]
     Indication: CARDIAC FAILURE
     Dosage: 20 MG, QW3, UNK
  2. ACETYLSALICYLIC ACID SRT [Suspect]
     Indication: MYOCARDIAL INFARCTION
  3. METILDIGOXIN [Concomitant]

REACTIONS (13)
  - ANAEMIA [None]
  - BLOOD CREATINE PHOSPHOKINASE INCREASED [None]
  - C-REACTIVE PROTEIN INCREASED [None]
  - CEREBRAL HAEMORRHAGE [None]
  - GASTROINTESTINAL HAEMORRHAGE [None]
  - HAEMORRHAGE URINARY TRACT [None]
  - LYMPHOCYTOSIS [None]
  - MOUTH HAEMORRHAGE [None]
  - PULMONARY HAEMORRHAGE [None]
  - RECTAL HAEMORRHAGE [None]
  - RETROPERITONEAL HAEMATOMA [None]
  - SUBDURAL HAEMATOMA [None]
  - THROMBOCYTOPENIC PURPURA [None]
